FAERS Safety Report 18427221 (Version 1)
Quarter: 2020Q4

REPORT INFORMATION
  Report Type: Spontaneous
  Country: KR (occurrence: KR)
  Receive Date: 20201026
  Receipt Date: 20201026
  Transmission Date: 20210114
  Serious: Yes (Other)
  Sender: FDA-Public Use
  Company Number: KR-BAYER-2020-223503

PATIENT

DRUGS (1)
  1. REGORAFENIB. [Suspect]
     Active Substance: REGORAFENIB
     Dosage: UNK

REACTIONS (6)
  - Diarrhoea [None]
  - Abdominal pain [None]
  - Transaminases increased [None]
  - Asthenia [None]
  - Jaundice [None]
  - Mucosal inflammation [None]
